FAERS Safety Report 5567792-X (Version None)
Quarter: 2007Q4

REPORT INFORMATION
  Report Type: 
  Country: None (occurrence: None)
  Receive Date: 20071214
  Receipt Date: 20071121
  Transmission Date: 20080405
  Serious: Yes (Death, Hospitalization)
  Sender: FDA-Public Use
  Company Number: M7001-02887-SPO-US

PATIENT
  Age: 57 Year
  Sex: Male
  Weight: 92 kg

DRUGS (5)
  1. TARGRETIN [Suspect]
     Indication: MYCOSIS FUNGOIDES
     Dosage: 600 MG, ORAL
     Route: 048
     Dates: start: 20071012, end: 20071120
  2. GLIPIZIDE [Concomitant]
  3. NORVASC [Concomitant]
  4. RISPERDAL [Concomitant]
  5. SEROQUEL [Concomitant]

REACTIONS (8)
  - ASTHENIA [None]
  - CEREBRAL HAEMORRHAGE [None]
  - CEREBROVASCULAR DISORDER [None]
  - DIZZINESS [None]
  - GENERAL PHYSICAL HEALTH DETERIORATION [None]
  - HAEMOGLOBIN DECREASED [None]
  - NUCLEAR MAGNETIC RESONANCE IMAGING BRAIN ABNORMAL [None]
  - VISUAL DISTURBANCE [None]
